FAERS Safety Report 4302625-0 (Version None)
Quarter: 2004Q1

REPORT INFORMATION
  Report Type: 
  Country: None (occurrence: None)
  Receive Date: 20040217
  Receipt Date: 20030116
  Transmission Date: 20041129
  Serious: Yes (Other)
  Sender: FDA-Public Use
  Company Number: 2003142493US

PATIENT

DRUGS (2)
  1. EMCYT [Suspect]
     Dates: start: 20020301
  2. PROCRIT (ERTHROPOIETIN) [Suspect]

REACTIONS (1)
  - DEEP VEIN THROMBOSIS [None]
